FAERS Safety Report 13967874 (Version 1)
Quarter: 2017Q3

REPORT INFORMATION
  Report Type: Report from Study
  Country: BR (occurrence: BR)
  Receive Date: 20170914
  Receipt Date: 20170914
  Transmission Date: 20171128
  Serious: Yes (Other)
  Sender: FDA-Public Use
  Company Number: PHHY2017BR134830

PATIENT
  Age: 83 Year
  Sex: Female
  Weight: 64 kg

DRUGS (1)
  1. EXELON PATCH [Suspect]
     Active Substance: RIVASTIGMINE
     Indication: DEMENTIA ALZHEIMER^S TYPE
     Dosage: 9.5 MG, QD PATCH 10 (CM2)
     Route: 062
     Dates: start: 2016

REACTIONS (3)
  - Cerebrovascular accident [Recovered/Resolved with Sequelae]
  - Balance disorder [Recovered/Resolved with Sequelae]
  - Gait disturbance [Recovered/Resolved with Sequelae]

NARRATIVE: CASE EVENT DATE: 201704
